FAERS Safety Report 5086726-8 (Version None)
Quarter: 2006Q3

REPORT INFORMATION
  Report Type: 
  Country: None (occurrence: None)
  Receive Date: 20060823
  Receipt Date: 20060530
  Transmission Date: 20061208
  Serious: Yes (Hospitalization)
  Sender: FDA-Public Use
  Company Number: US-ROCHE-450221

PATIENT
  Age: 38 Year
  Sex: Female

DRUGS (6)
  1. PEGASYS [Suspect]
     Route: 050
     Dates: start: 20060306
  2. PEGASYS [Suspect]
     Route: 050
  3. COPEGUS [Suspect]
     Route: 048
     Dates: start: 20060306
  4. COPEGUS [Suspect]
     Route: 048
  5. DIURETIC [Concomitant]
  6. METHADONE HCL [Concomitant]
     Indication: DRUG USE FOR UNKNOWN INDICATION
     Route: 065

REACTIONS (12)
  - BLOOD POTASSIUM DECREASED [None]
  - BURNING SENSATION [None]
  - CHEST PAIN [None]
  - COAGULOPATHY [None]
  - DIZZINESS [None]
  - DRY SKIN [None]
  - HEADACHE [None]
  - INFLUENZA LIKE ILLNESS [None]
  - INSOMNIA [None]
  - MYALGIA [None]
  - NAUSEA [None]
  - OEDEMA PERIPHERAL [None]
